FAERS Safety Report 15715678 (Version 1)
Quarter: 2018Q4

REPORT INFORMATION
  Report Type: Spontaneous
  Country: US (occurrence: US)
  Receive Date: 20181212
  Receipt Date: 20181212
  Transmission Date: 20190205
  Serious: No
  Sender: FDA-Public Use
  Company Number: US-AQUA PHARMACEUTICALS-2018AQU000355

PATIENT

DRUGS (1)
  1. ACZONE [Suspect]
     Active Substance: DAPSONE
     Indication: ACNE
     Dosage: APPLIED IN THE T ZONE ONCE A DAY AND SOMETIMES ON HER NOSE IN THE EVENING
     Route: 061
     Dates: start: 201807, end: 2018

REACTIONS (4)
  - Inappropriate schedule of product administration [Unknown]
  - Acne pustular [Not Recovered/Not Resolved]
  - Drug ineffective [Unknown]
  - Product physical issue [Unknown]

NARRATIVE: CASE EVENT DATE: 201807
